FAERS Safety Report 16645814 (Version 1)
Quarter: 2019Q3

REPORT INFORMATION
  Report Type: Spontaneous
  Country: US (occurrence: US)
  Receive Date: 20190730
  Receipt Date: 20190730
  Transmission Date: 20191004
  Serious: No
  Sender: FDA-Public Use
  Company Number: US-009507513-1907USA010589

PATIENT
  Sex: Female

DRUGS (4)
  1. VITAMIN E [Concomitant]
     Active Substance: .ALPHA.-TOCOPHEROL
  2. ZOLINZA [Suspect]
     Active Substance: VORINOSTAT
     Indication: NEOPLASM MALIGNANT
     Dosage: 200 MILLIGRAM DAILY FOR 2 WEEKS ON AND THEN 2 WEEKS OFF
     Route: 048
  3. PENTOXIFYLLINE. [Concomitant]
     Active Substance: PENTOXIFYLLINE
  4. ZOLINZA [Suspect]
     Active Substance: VORINOSTAT
     Dosage: 100 MILLIGRAM DAILY FOR 2 WEEKS ON AND THEN 2 WEEKS OFF
     Route: 048

REACTIONS (3)
  - Adverse event [Unknown]
  - Product storage error [Unknown]
  - Product use in unapproved indication [Unknown]
